FAERS Safety Report 8762522 (Version 1)
Quarter: 2012Q4

REPORT INFORMATION
  Report Type: 
  Country: US (occurrence: US)
  Receive Date: 20120830
  Receipt Date: 20120830
  Transmission Date: 20130627
  Serious: No
  Sender: FDA-Public Use
  Company Number: US-PFIZER INC-2012208798

PATIENT
  Sex: Male

DRUGS (2)
  1. SOMAVERT [Suspect]
     Indication: ACROMEGALY
     Dosage: UNK
     Dates: start: 201203
  2. SOMAVERT [Suspect]
     Dosage: 20 mg, UNK
     Dates: start: 2012

REACTIONS (1)
  - Insulin-like growth factor increased [Unknown]
